FAERS Safety Report 24857587 (Version 1)
Quarter: 2025Q1

REPORT INFORMATION
  Report Type: Spontaneous
  Country: US (occurrence: None)
  Receive Date: 20250117
  Receipt Date: 20250117
  Transmission Date: 20250409
  Serious: Yes (Other)
  Sender: FDA-CTU
  Company Number: None

PATIENT
  Age: 63 Year
  Sex: Female
  Weight: 137.25 kg

DRUGS (10)
  1. WEGOVY [Suspect]
     Active Substance: SEMAGLUTIDE
     Indication: Obesity
     Route: 058
     Dates: end: 20250106
  2. PREDNISONE [Concomitant]
     Active Substance: PREDNISONE
  3. LISINOPRIL [Concomitant]
     Active Substance: LISINOPRIL
  4. SYNTHROID [Concomitant]
     Active Substance: LEVOTHYROXINE SODIUM
  5. MELOXICAM [Concomitant]
     Active Substance: MELOXICAM
  6. METFORMIN [Concomitant]
     Active Substance: METFORMIN HYDROCHLORIDE
  7. BUPROPION [Concomitant]
     Active Substance: BUPROPION
  8. ANTIHISTAMINES NOS [Concomitant]
     Active Substance: ANTIHISTAMINES NOS
  9. B12 [Concomitant]
  10. VITAMIN D3 [Concomitant]
     Active Substance: CHOLECALCIFEROL

REACTIONS (9)
  - Nausea [None]
  - Product use issue [None]
  - Vomiting [None]
  - Headache [None]
  - Nephrolithiasis [None]
  - Sinusitis [None]
  - Constipation [None]
  - Drug intolerance [None]
  - Therapy cessation [None]

NARRATIVE: CASE EVENT DATE: 20250107
